FAERS Safety Report 21136978 (Version 1)
Quarter: 2022Q3

REPORT INFORMATION
  Report Type: Spontaneous
  Country: US (occurrence: None)
  Receive Date: 20220726
  Receipt Date: 20220726
  Transmission Date: 20221027
  Serious: Yes (Life-Threatening, Hospitalization, Disabling)
  Sender: FDA-Public Use
  Company Number: None

PATIENT
  Age: 66 Year
  Sex: Male
  Weight: 81 kg

DRUGS (1)
  1. MAGNESIUM CITRATE SALINE LAXATIVE [Suspect]
     Active Substance: MAGNESIUM CITRATE
     Dates: start: 20220715, end: 20220715

REACTIONS (3)
  - Recalled product administered [None]
  - Abdominal pain upper [None]
  - Near death experience [None]

NARRATIVE: CASE EVENT DATE: 20220715
